FAERS Safety Report 13022992 (Version 1)
Quarter: 2016Q4

REPORT INFORMATION
  Report Type: Spontaneous
  Country: ES (occurrence: ES)
  Receive Date: 20161213
  Receipt Date: 20161213
  Transmission Date: 20170207
  Serious: Yes (Other)
  Sender: FDA-Public Use
  Company Number: ES-CELGENEUS-ESP-2016118266

PATIENT
  Age: 45 Year
  Sex: Male
  Weight: 70 kg

DRUGS (1)
  1. OTEZLA [Suspect]
     Active Substance: APREMILAST
     Indication: PRODUCT USED FOR UNKNOWN INDICATION
     Route: 048
     Dates: start: 201607

REACTIONS (2)
  - Mood altered [Recovering/Resolving]
  - Tachycardia [Recovered/Resolved]

NARRATIVE: CASE EVENT DATE: 20160706
